FAERS Safety Report 6265457-2 (Version None)
Quarter: 2009Q3

REPORT INFORMATION
  Report Type: 
  Country: None (occurrence: None)
  Receive Date: 20090713
  Receipt Date: 20090708
  Transmission Date: 20100115
  Serious: No
  Sender: FDA-Public Use
  Company Number: US-B.I. PHARMACEUTICALS,INC./RIDGEFIELD-2009-BP-07587BP

PATIENT
  Sex: Male

DRUGS (7)
  1. SPIRIVA [Suspect]
     Indication: CHRONIC OBSTRUCTIVE PULMONARY DISEASE
     Dosage: 18 MCG
     Route: 055
     Dates: start: 20080101
  2. SPIRIVA [Suspect]
     Indication: DYSPNOEA
  3. TRIAMTERENE [Concomitant]
     Indication: OEDEMA PERIPHERAL
  4. WARFARIN SODIUM [Concomitant]
  5. CARTIA XT [Concomitant]
  6. DIGOXIN [Concomitant]
  7. AMIODARONE HCL [Concomitant]

REACTIONS (1)
  - DYSPNOEA [None]
